FAERS Safety Report 9812159 (Version 2)
Quarter: 2014Q1

REPORT INFORMATION
  Report Type: Report from Study
  Country: GB (occurrence: GB)
  Receive Date: 20140112
  Receipt Date: 20140203
  Transmission Date: 20141002
  Serious: Yes (Hospitalization)
  Sender: FDA-Public Use
  Company Number: GB-AMGEN-GBRCT2014001528

PATIENT
  Age: 59 Year
  Sex: Male
  Weight: 103 kg

DRUGS (7)
  1. ETANERCEPT [Suspect]
     Indication: PRODUCT USED FOR UNKNOWN INDICATION
     Dosage: 60 MG, QWK
     Route: 065
     Dates: start: 20121010, end: 20130417
  2. ASPIRIN [Concomitant]
     Dosage: UNK
     Dates: start: 20100515
  3. HYDROXYZINE [Concomitant]
     Dosage: UNK
     Dates: start: 20100515
  4. DILTIAZEM [Concomitant]
     Dosage: UNK
     Dates: start: 20100515
  5. OMEPRAZOLE [Concomitant]
     Dosage: UNK
     Dates: start: 20090105
  6. BENDROFLUMETHIAZIDE [Concomitant]
     Dosage: UNK
     Dates: start: 20110412
  7. RAMIPRIL [Concomitant]
     Dosage: UNK
     Dates: start: 2009

REACTIONS (1)
  - Moraxella infection [Recovered/Resolved]
